FAERS Safety Report 6441830-4 (Version None)
Quarter: 2009Q4

REPORT INFORMATION
  Report Type: 
  Country: None (occurrence: None)
  Receive Date: 20091116
  Receipt Date: 20091102
  Transmission Date: 20100525
  Serious: Yes (Hospitalization)
  Sender: FDA-Public Use
  Company Number: CA-SANOFI-AVENTIS-200921993GDDC

PATIENT
  Age: 61 Year
  Sex: Male

DRUGS (11)
  1. METFORMIN HYDROCHLORIDE [Suspect]
     Indication: DRUG USE FOR UNKNOWN INDICATION
  2. GLIBENCLAMIDE [Suspect]
     Indication: DRUG USE FOR UNKNOWN INDICATION
  3. MONOCOR [Suspect]
     Indication: DRUG USE FOR UNKNOWN INDICATION
  4. DIAZEPAM [Suspect]
     Indication: DRUG USE FOR UNKNOWN INDICATION
  5. DILAUDID [Suspect]
     Indication: DRUG USE FOR UNKNOWN INDICATION
  6. DILAUDID [Suspect]
  7. FLURAZEPAM [Suspect]
     Indication: DRUG USE FOR UNKNOWN INDICATION
  8. LIPITOR [Suspect]
     Indication: DRUG USE FOR UNKNOWN INDICATION
  9. MEDROXYPROGESTERONE ACETATE [Suspect]
     Indication: DRUG USE FOR UNKNOWN INDICATION
  10. AVASTIN [Concomitant]
     Indication: DRUG USE FOR UNKNOWN INDICATION
     Dosage: DOSE AS USED: UNK
  11. PLATINUM COMPOUNDS [Concomitant]
     Indication: DRUG USE FOR UNKNOWN INDICATION
     Dosage: DOSE AS USED: UNK

REACTIONS (10)
  - BLOOD CREATININE INCREASED [None]
  - COMA SCALE ABNORMAL [None]
  - CONFUSIONAL STATE [None]
  - DECREASED APPETITE [None]
  - DEHYDRATION [None]
  - DRUG TOXICITY [None]
  - HAEMOGLOBIN DECREASED [None]
  - HYPOTENSION [None]
  - INTENTIONAL DRUG MISUSE [None]
  - MENTAL STATUS CHANGES [None]
